FAERS Safety Report 5119422-9 (Version None)
Quarter: 2006Q4

REPORT INFORMATION
  Report Type: 
  Country: None (occurrence: None)
  Receive Date: 20061003
  Receipt Date: 20060526
  Transmission Date: 20070319
  Serious: Yes (Other)
  Sender: FDA-Public Use
  Company Number: PHBS2006ES08091

PATIENT
  Age: 26 Year
  Sex: Female

DRUGS (6)
  1. DOGMATYL [Concomitant]
     Indication: MOTION SICKNESS
     Dates: start: 20060518
  2. ACETAMINOPHEN [Concomitant]
     Dosage: UNK, UNK
     Dates: start: 20060518, end: 20060520
  3. ALPRAZOLAM [Concomitant]
     Dosage: 1 DF, QD
     Route: 048
     Dates: start: 20060518, end: 20060520
  4. TORECAN [Suspect]
     Indication: VERTIGO
     Dosage: 1 DF, QD
     Route: 048
     Dates: start: 20060518, end: 20060520
  5. TORECAN [Suspect]
     Dosage: 2 DF/D
     Route: 048
     Dates: start: 20060519, end: 20060519
  6. TORECAN [Suspect]
     Dosage: 1 DF, QD
     Route: 048
     Dates: start: 20060520, end: 20060520

REACTIONS (10)
  - ANXIETY [None]
  - BLINDNESS [None]
  - DROWNING [None]
  - DYSKINESIA [None]
  - EXTRAPYRAMIDAL DISORDER [None]
  - GAIT DISTURBANCE [None]
  - HALLUCINATION [None]
  - MUSCLE RIGIDITY [None]
  - MUSCLE SPASMS [None]
  - TREMOR [None]
